FAERS Safety Report 16627385 (Version 2)
Quarter: 2019Q3

REPORT INFORMATION
  Report Type: Report from Study
  Country: US (occurrence: US)
  Receive Date: 20190724
  Receipt Date: 20190819
  Transmission Date: 20191004
  Serious: Yes (Hospitalization)
  Sender: FDA-Public Use
  Company Number: US-ACTELION-A-NJ2019-189937

PATIENT
  Age: 59 Year
  Sex: Female

DRUGS (20)
  1. SYNTHROID [Concomitant]
     Active Substance: LEVOTHYROXINE SODIUM
     Dosage: 125 MCG, QD
  2. ASA [Concomitant]
     Active Substance: ASPIRIN
     Dosage: 81 MG, QD
  3. OPSUMIT [Suspect]
     Active Substance: MACITENTAN
     Indication: PULMONARY ARTERIAL HYPERTENSION
     Dosage: 10 MG, QD
     Route: 048
     Dates: start: 20180723
  4. COREG [Concomitant]
     Active Substance: CARVEDILOL
     Dosage: 3.25 MG, BID
  5. TRAMADOL. [Concomitant]
     Active Substance: TRAMADOL
     Dosage: 50 MG, QPM
  6. UMECLIDINIUM W/VILANTEROL [Concomitant]
     Dosage: UNK, QD
  7. ASTRO [Concomitant]
     Dosage: UNK, QPM
  8. NEURONTIN [Concomitant]
     Active Substance: GABAPENTIN
     Dosage: 300 MG, TID
  9. VENTOLIN HFA [Concomitant]
     Active Substance: ALBUTEROL SULFATE
  10. APAP [Concomitant]
     Active Substance: ACETAMINOPHEN
     Dosage: 375 MG, QPM
  11. NITROGLYCERIN. [Concomitant]
     Active Substance: NITROGLYCERIN
  12. REVATIO [Concomitant]
     Active Substance: SILDENAFIL CITRATE
     Dosage: 10 MG, QD
  13. LEXAPRO [Concomitant]
     Active Substance: ESCITALOPRAM OXALATE
     Dosage: 20 MG, QD
  14. PLAQUENIL [Concomitant]
     Active Substance: HYDROXYCHLOROQUINE SULFATE
     Dosage: 200 MG, QPM
  15. FLEXERIL [Concomitant]
     Active Substance: CYCLOBENZAPRINE HYDROCHLORIDE
     Dosage: 5 MG, QPM
  16. IMITREX [Concomitant]
     Active Substance: SUMATRIPTAN SUCCINATE
     Dosage: 50 MG, QPM
  17. TADALAFIL. [Concomitant]
     Active Substance: TADALAFIL
     Dosage: 20 MG, QD
     Dates: start: 2019
  18. LISINOPRIL. [Concomitant]
     Active Substance: LISINOPRIL
     Dosage: 40 MG, QD
  19. LOVASTAT [Concomitant]
     Dosage: 30 MG, QD
  20. OMEPRAZOLE. [Concomitant]
     Active Substance: OMEPRAZOLE
     Dosage: 20 MG, QD

REACTIONS (21)
  - Hypokinesia [Recovering/Resolving]
  - Headache [Unknown]
  - Pulmonary mass [Unknown]
  - Arthralgia [Recovering/Resolving]
  - Dyspnoea [Unknown]
  - Depression [Unknown]
  - Musculoskeletal stiffness [Recovering/Resolving]
  - Product dose omission [Unknown]
  - Anxiety [Unknown]
  - Lacrimation increased [Unknown]
  - Hypoxia [Unknown]
  - Memory impairment [Unknown]
  - Dysphonia [Unknown]
  - Myalgia [Unknown]
  - Asthenia [Unknown]
  - Pain in extremity [Unknown]
  - Cough [Unknown]
  - Rheumatoid arthritis [Recovering/Resolving]
  - Rash [Unknown]
  - Chest pain [Unknown]
  - Breath sounds abnormal [Unknown]

NARRATIVE: CASE EVENT DATE: 20190426
